FAERS Safety Report 24550392 (Version 1)
Quarter: 2024Q4

REPORT INFORMATION
  Report Type: Spontaneous
  Country: CA (occurrence: CA)
  Receive Date: 20241025
  Receipt Date: 20241025
  Transmission Date: 20250115
  Serious: Yes (Other)
  Sender: LANTHEUS MEDICAL IMAGING
  Company Number: CA-LANTHEUS-LMI-2024-00747

PATIENT
  Age: 62 Year
  Sex: Male
  Weight: 74 kg

DRUGS (2)
  1. DEFINITY [Suspect]
     Active Substance: PERFLUTREN
     Indication: Echocardiogram
     Dosage: LESS THAN 1 ML (0.5 ML DEFINITY PREPARED IN 9.5 ML DILUENT)
     Route: 042
     Dates: start: 20240610, end: 20240610
  2. DEFINITY [Suspect]
     Active Substance: PERFLUTREN
     Indication: Ultrasound scan

REACTIONS (3)
  - Musculoskeletal chest pain [Recovered/Resolved]
  - Flank pain [Recovered/Resolved]
  - Renal pain [Recovered/Resolved]

NARRATIVE: CASE EVENT DATE: 20240610
